FAERS Safety Report 8604461-3 (Version None)
Quarter: 2012Q3

REPORT INFORMATION
  Report Type: 
  Country: None (occurrence: None)
  Receive Date: 20120806
  Receipt Date: 20120806
  Transmission Date: 20120928
  Serious: Yes (Life-Threatening)
  Sender: FDA-Public Use
  Company Number: None

PATIENT
  Age: 66 Year
  Sex: Male
  Weight: 62.5964 kg

DRUGS (1)
  1. STALEVO 200 [Suspect]
     Indication: PARKINSON'S DISEASE
     Dosage: 200 6 TIMES PER DAY PO
     Route: 048
     Dates: start: 20041030, end: 20120803

REACTIONS (3)
  - PRODUCT COUNTERFEIT [None]
  - PRODUCT QUALITY ISSUE [None]
  - DRUG DISPENSING ERROR [None]
